FAERS Safety Report 12812561 (Version 1)
Quarter: 2016Q4

REPORT INFORMATION
  Report Type: Spontaneous
  Country: GB (occurrence: GB)
  Receive Date: 20161005
  Receipt Date: 20161005
  Transmission Date: 20170207
  Serious: Yes (Life-Threatening)
  Sender: FDA-Public Use
  Company Number: GB-ASTRAZENECA-2016SF03164

PATIENT
  Age: 56 Year
  Sex: Male
  Weight: 95.3 kg

DRUGS (3)
  1. DAPAGLIFLOZIN [Suspect]
     Active Substance: DAPAGLIFLOZIN
     Indication: TYPE 2 DIABETES MELLITUS
     Route: 048
     Dates: start: 20160415, end: 20160823
  2. GLICLAZIDE [Concomitant]
     Active Substance: GLICLAZIDE
  3. METFORMIN [Concomitant]
     Active Substance: METFORMIN HYDROCHLORIDE

REACTIONS (4)
  - Pyrexia [Unknown]
  - Ketoacidosis [Recovered/Resolved]
  - Lower urinary tract symptoms [Unknown]
  - Malaise [Unknown]

NARRATIVE: CASE EVENT DATE: 20160823
